FAERS Safety Report 13940986 (Version 5)
Quarter: 2017Q4

REPORT INFORMATION
  Report Type: Report from Study
  Country: JP (occurrence: JP)
  Receive Date: 20170906
  Receipt Date: 20171113
  Transmission Date: 20180320
  Serious: Yes (Hospitalization)
  Sender: FDA-Public Use
  Company Number: JP-PFIZER INC-2017376941

PATIENT
  Age: 75 Year
  Sex: Female
  Weight: 50 kg

DRUGS (14)
  1. XELJANZ [Suspect]
     Active Substance: TOFACITINIB CITRATE
     Dosage: 5 MG, 1X/DAY
     Route: 048
     Dates: start: 20170811, end: 20170816
  2. METHOTREXATE SODIUM. [Suspect]
     Active Substance: METHOTREXATE SODIUM
     Indication: RHEUMATOID ARTHRITIS
     Dosage: 9 MG, WEEKLY
     Route: 048
     Dates: end: 20170810
  3. NU LOTAN [Concomitant]
     Active Substance: LOSARTAN
     Route: 048
  4. METHOTREXATE SODIUM. [Suspect]
     Active Substance: METHOTREXATE SODIUM
     Dosage: 6 MG, WEEKLY
     Route: 048
     Dates: start: 20170825
  5. XELJANZ [Suspect]
     Active Substance: TOFACITINIB CITRATE
     Dosage: 5 MG, 2X/DAY
     Route: 048
     Dates: start: 20161026, end: 20170810
  6. THYRADIN [Concomitant]
     Active Substance: LEVOTHYROXINE
     Route: 048
  7. AMLODINE /00972401/ [Concomitant]
     Route: 048
  8. PREDNISOLONE. [Suspect]
     Active Substance: PREDNISOLONE
     Dosage: 3 MG, DAILY
     Dates: start: 20161118
  9. CYTOTEC [Concomitant]
     Active Substance: MISOPROSTOL
     Route: 048
  10. OMEPRAL /00661201/ [Concomitant]
     Active Substance: OMEPRAZOLE
     Route: 048
  11. PREDNISOLONE. [Suspect]
     Active Substance: PREDNISOLONE
     Dosage: 4 MG, DAILY
     Dates: end: 20161117
  12. HYPEN /00340101/ [Concomitant]
     Route: 048
  13. FOLIAMIN [Concomitant]
     Active Substance: FOLIC ACID
     Route: 048
  14. XELJANZ [Suspect]
     Active Substance: TOFACITINIB CITRATE
     Indication: RHEUMATOID ARTHRITIS
     Dosage: 5 MG, 1X/DAY
     Route: 048
     Dates: start: 20160817, end: 20161025

REACTIONS (2)
  - Herpes zoster [Recovering/Resolving]
  - Liver abscess [Recovering/Resolving]

NARRATIVE: CASE EVENT DATE: 20170816
